FAERS Safety Report 5921980-9 (Version None)
Quarter: 2008Q3

REPORT INFORMATION
  Report Type: 
  Country: None (occurrence: None)
  Receive Date: 20080909
  Receipt Date: 20080701
  Transmission Date: 20090109
  Serious: Yes (Hospitalization)
  Sender: FDA-Public Use
  Company Number: 163-20785-08060783

PATIENT
  Age: 93 Year
  Sex: Female

DRUGS (16)
  1. THALOMID [Suspect]
     Indication: MULTIPLE MYELOMA
     Dosage: 50 MG, M/W/F, ORAL
     Route: 048
     Dates: start: 20021002, end: 20080501
  2. ASPIRIN [Concomitant]
  3. DEXAMETHASONE TAB [Concomitant]
  4. PLAVIX [Concomitant]
  5. FERROUS SULFATE TAB [Concomitant]
  6. POTASSIUM CHLORIDE EXTENDED RELEASE (POTASSIUM CHLORIDE) [Concomitant]
  7. ALBUTEROL UD (SALBUTAMOL) [Concomitant]
  8. LEVAQUIN [Concomitant]
  9. MIRALAX [Concomitant]
  10. LASIX [Concomitant]
  11. GABAPENTIN [Concomitant]
  12. VITAMIN B12 [Concomitant]
  13. SYNTHROID [Concomitant]
  14. SPIRONOLACTONE [Concomitant]
  15. DARVOCET [Concomitant]
  16. SILVASORB (MEDICATED DRESSINGS WITH ANTIINFECTIVES) (GEL) [Concomitant]

REACTIONS (3)
  - DEHYDRATION [None]
  - GASTROENTERITIS [None]
  - PNEUMONIA [None]
